FAERS Safety Report 9166801 (Version 1)
Quarter: 2012Q4

REPORT INFORMATION
  Report Type: 
  Country: US (occurrence: US)
  Receive Date: 20121114
  Receipt Date: 20121114
  Transmission Date: 20130627
  Serious: Yes (Other)
  Sender: FDA-Public Use
  Company Number: US-RB-046601-12

PATIENT
  Age: 41 Year
  Sex: Female

DRUGS (6)
  1. SUBOXONE TABLETS [Suspect]
     Indication: PAIN MANAGEMENT
     Route: 060
     Dates: start: 2007
  2. SUBOXONE TABLETS [Suspect]
     Route: 060
  3. SUBOXONE TABLETS [Suspect]
     Route: 060
     Dates: end: 20121101
  4. IBUPROFEN [Concomitant]
     Indication: PAIN
     Dosage: 800 mg as needed
     Route: 065
  5. OMEPRAZOLE [Concomitant]
     Indication: GASTROOESOPHAGEAL REFLUX DISEASE
     Route: 065
  6. ZOLOFT [Concomitant]
     Indication: DEPRESSION
     Dosage: 100 mg
     Route: 065

REACTIONS (7)
  - Prescribed overdose [Recovered/Resolved]
  - Off label use [Recovered/Resolved]
  - Cerebrovascular accident [Recovered/Resolved]
  - Hemiparesis [Not Recovered/Not Resolved]
  - Grand mal convulsion [Not Recovered/Not Resolved]
  - Wrong technique in drug usage process [Recovered/Resolved]
  - Drug withdrawal syndrome [Not Recovered/Not Resolved]
